FAERS Safety Report 7337694-7 (Version None)
Quarter: 2011Q1

REPORT INFORMATION
  Report Type: 
  Country: None (occurrence: None)
  Receive Date: 20110308
  Receipt Date: 20110224
  Transmission Date: 20110831
  Serious: Yes (Hospitalization)
  Sender: FDA-Public Use
  Company Number: AU-JNJFOC-20101104812

PATIENT
  Sex: Female

DRUGS (3)
  1. STELARA [Suspect]
     Route: 058
  2. STELARA [Suspect]
     Indication: PSORIASIS
     Route: 058
  3. STELARA [Suspect]
     Route: 058

REACTIONS (5)
  - SKIN INFECTION [None]
  - FATIGUE [None]
  - EAR INFECTION [None]
  - GASTROENTERITIS [None]
  - THERAPEUTIC RESPONSE DECREASED [None]
